FAERS Safety Report 9918172 (Version 1)
Quarter: 2014Q1

REPORT INFORMATION
  Report Type: Report from Study
  Country: US (occurrence: US)
  Receive Date: 20140223
  Receipt Date: 20140223
  Transmission Date: 20141002
  Serious: Yes (Life-Threatening, Hospitalization)
  Sender: FDA-Public Use
  Company Number: US-TEVA-463999USA

PATIENT
  Age: 1 Year
  Sex: Female
  Weight: 8.5 kg

DRUGS (10)
  1. LESTAURTINIB [Suspect]
     Indication: ACUTE LYMPHOCYTIC LEUKAEMIA
     Dates: start: 20121206
  2. CYCLOPHOSPHAMIDE [Suspect]
     Dates: start: 20121206
  3. CYTARABINE [Suspect]
     Indication: ACUTE LYMPHOCYTIC LEUKAEMIA
     Dates: start: 20121206
  4. DEXAMETHASONE [Suspect]
     Dates: start: 20121206
  5. ETOPOSIDE [Suspect]
     Dates: start: 20121206
  6. HYDROCORTISONE [Suspect]
     Dates: start: 20121206
  7. MERCAPTOPURINE [Suspect]
     Dates: start: 20121206
  8. METHOTREXATE [Suspect]
     Dates: start: 20121206
  9. PEG-L-ASPARAGINASE [Suspect]
     Indication: ACUTE LYMPHOCYTIC LEUKAEMIA
     Dates: start: 20121206
  10. VINCRISTINE [Suspect]
     Dates: start: 20121206

REACTIONS (5)
  - Sepsis [Recovered/Resolved]
  - Urinary tract infection [Recovered/Resolved]
  - Lung infection [Recovered/Resolved]
  - Cytomegalovirus infection [Recovered/Resolved]
  - Anorectal infection [Recovered/Resolved]
